FAERS Safety Report 11440408 (Version 1)
Quarter: 2015Q3

REPORT INFORMATION
  Report Type: Spontaneous
  Country: US (occurrence: US)
  Receive Date: 20150901
  Receipt Date: 20150901
  Transmission Date: 20151125
  Serious: No
  Sender: FDA-Public Use
  Company Number: US-ROCHE-1062516

PATIENT
  Sex: Male

DRUGS (4)
  1. PEGASYS [Suspect]
     Active Substance: PEGINTERFERON ALFA-2A
     Indication: CHRONIC HEPATITIS C
     Route: 058
     Dates: start: 20120414
  2. RIBASPHERE RIBAPAK [Suspect]
     Active Substance: RIBAVIRIN
     Indication: CHRONIC HEPATITIS C
     Dosage: DAILY DIVIDED DOSES
     Route: 065
     Dates: start: 20120414
  3. RIBASPHERE [Suspect]
     Active Substance: RIBAVIRIN
     Indication: CHRONIC HEPATITIS C
     Dosage: DAILY DIVIDED DOSES
     Route: 065
     Dates: start: 20120414
  4. TELAPREVIR [Suspect]
     Active Substance: TELAPREVIR
     Indication: CHRONIC HEPATITIS C
     Dosage: FOR UNKNOWN WEEK OF LENGTH
     Route: 065
     Dates: start: 20120414

REACTIONS (5)
  - Haemoglobin decreased [Unknown]
  - Pain [Recovered/Resolved]
  - Influenza like illness [Recovered/Resolved]
  - Oropharyngeal pain [Unknown]
  - Fatigue [Unknown]
